FAERS Safety Report 20596291 (Version 8)
Quarter: 2025Q4

REPORT INFORMATION
  Report Type: Report from Study
  Country: CA (occurrence: CA)
  Receive Date: 20220315
  Receipt Date: 20251113
  Transmission Date: 20260117
  Serious: Yes (Other)
  Sender: TAKEDA
  Company Number: CA-TAKEDA-CA202014812

PATIENT
  Age: 47 Year
  Sex: Female
  Weight: 71 kg

DRUGS (23)
  1. HUMAN IMMUNOGLOBULIN G [Suspect]
     Active Substance: HUMAN IMMUNOGLOBULIN G
     Indication: Primary immunodeficiency syndrome
     Dosage: 22 MILLIGRAM, 1/WEEK
     Dates: start: 20191018
  2. HUMAN IMMUNOGLOBULIN G [Suspect]
     Active Substance: HUMAN IMMUNOGLOBULIN G
     Dosage: 22 GRAM, 1/WEEK
  3. HUMAN IMMUNOGLOBULIN G [Suspect]
     Active Substance: HUMAN IMMUNOGLOBULIN G
     Dosage: 8 GRAM
  4. HUMAN IMMUNOGLOBULIN G [Suspect]
     Active Substance: HUMAN IMMUNOGLOBULIN G
     Dosage: 2 GRAM
  5. HUMAN IMMUNOGLOBULIN G [Suspect]
     Active Substance: HUMAN IMMUNOGLOBULIN G
     Dosage: 1 GRAM
  6. HUMAN IMMUNOGLOBULIN G [Suspect]
     Active Substance: HUMAN IMMUNOGLOBULIN G
     Dosage: 19 GRAM, 1/WEEK
  7. HUMAN IMMUNOGLOBULIN G [Suspect]
     Active Substance: HUMAN IMMUNOGLOBULIN G
     Dosage: 19 GRAM, 1/WEEK
  8. ABRILADA [Suspect]
     Active Substance: ADALIMUMAB-AFZB
     Indication: Crohn^s disease
     Dosage: UNK
  9. STELARA [Suspect]
     Active Substance: USTEKINUMAB
     Indication: Crohn^s disease
     Dosage: UNK UNK, Q4WEEKS
     Dates: start: 202011
  10. STELARA [Suspect]
     Active Substance: USTEKINUMAB
     Dosage: UNK UNK, Q4WEEKS
     Dates: start: 202105
  11. PENTASA [Concomitant]
     Active Substance: MESALAMINE
     Indication: Crohn^s disease
     Dosage: 1 GRAM, QID
  12. HYDROXYCHLOROQUINE SULFATE [Concomitant]
     Active Substance: HYDROXYCHLOROQUINE SULFATE
     Indication: Arthritis
     Dosage: 200 MILLIGRAM, QD
  13. GLUMETZA [Concomitant]
     Active Substance: METFORMIN HYDROCHLORIDE
     Indication: Product used for unknown indication
     Dosage: 2000 MILLIGRAM, QD
  14. ONGLYZA [Concomitant]
     Active Substance: SAXAGLIPTIN HYDROCHLORIDE
     Indication: Product used for unknown indication
     Dosage: 5 MILLIGRAM, QD
  15. INVOKANA [Concomitant]
     Active Substance: CANAGLIFLOZIN
     Indication: Product used for unknown indication
     Dosage: 100 MILLIGRAM, QD
  16. PANTOPRAZOLE SODIUM [Concomitant]
     Active Substance: PANTOPRAZOLE SODIUM
     Indication: Product used for unknown indication
     Dosage: 30 MILLIGRAM, BID
  17. Trimax [Concomitant]
     Indication: Product used for unknown indication
     Dosage: 2 DOSAGE FORM, BID
  18. ARTHROTEC [Concomitant]
     Active Substance: DICLOFENAC SODIUM\MISOPROSTOL
     Indication: Product used for unknown indication
     Dosage: 75 MILLIGRAM, QD
  19. SYNTHROID [Concomitant]
     Active Substance: LEVOTHYROXINE SODIUM
     Indication: Product used for unknown indication
     Dosage: 100 MICROGRAM, QD
  20. MYRBETRIQ [Concomitant]
     Active Substance: MIRABEGRON
     Indication: Product used for unknown indication
     Dosage: 50 MILLIGRAM, QD
  21. Reactine [Concomitant]
     Indication: Product used for unknown indication
     Dosage: 20 MILLIGRAM, QD
  22. PLAQUENIL [Concomitant]
     Active Substance: HYDROXYCHLOROQUINE SULFATE
     Dosage: 2 DOSAGE FORM, QD
  23. PLAQUENIL [Concomitant]
     Active Substance: HYDROXYCHLOROQUINE SULFATE
     Dosage: 1.5 DOSAGE FORM

REACTIONS (40)
  - Gallbladder disorder [Unknown]
  - COVID-19 pneumonia [Unknown]
  - Crohn^s disease [Unknown]
  - Infusion site scar [Unknown]
  - Skin irritation [Unknown]
  - Lack of infusion site rotation [Unknown]
  - Infusion site irritation [Unknown]
  - Injection site irritation [Unknown]
  - Injection site bruising [Unknown]
  - Weight fluctuation [Unknown]
  - Weight decreased [Not Recovered/Not Resolved]
  - Fall [Not Recovered/Not Resolved]
  - Limb injury [Not Recovered/Not Resolved]
  - Rotator cuff syndrome [Not Recovered/Not Resolved]
  - Muscle atrophy [Not Recovered/Not Resolved]
  - Excessive skin [Unknown]
  - Weight increased [Unknown]
  - Sinus disorder [Recovered/Resolved]
  - Productive cough [Unknown]
  - Staphylococcal skin infection [Recovered/Resolved]
  - Tympanic membrane perforation [Not Recovered/Not Resolved]
  - Needle issue [Unknown]
  - Drug ineffective [Unknown]
  - Product use issue [Unknown]
  - Incorrect drug administration rate [Recovered/Resolved]
  - Sinusitis [Recovered/Resolved]
  - Infusion site haemorrhage [Not Recovered/Not Resolved]
  - Injection site mass [Unknown]
  - Feeling abnormal [Not Recovered/Not Resolved]
  - Injection site swelling [Unknown]
  - Oropharyngeal pain [Unknown]
  - Infusion site reaction [Unknown]
  - Chest pain [Unknown]
  - Injection site pruritus [Recovering/Resolving]
  - Injection site erythema [Unknown]
  - Dyspnoea [Unknown]
  - Infection [Recovered/Resolved]
  - Chest discomfort [Unknown]
  - Pyrexia [Unknown]
  - Fatigue [Recovering/Resolving]

NARRATIVE: CASE EVENT DATE: 20200101
